FAERS Safety Report 8483971-6 (Version None)
Quarter: 2012Q2

REPORT INFORMATION
  Report Type: 
  Country: None (occurrence: None)
  Receive Date: 20120402
  Receipt Date: 20110305
  Transmission Date: 20120825
  Serious: Yes (Hospitalization)
  Sender: FDA-Public Use
  Company Number: A-NJ2011-45958

PATIENT
  Age: 32 Year
  Sex: Female

DRUGS (2)
  1. SILDENAFIL CITRATE [Concomitant]
  2. EPOPROSTENOL SODIUM [Suspect]
     Indication: PULMONARY ARTERIAL HYPERTENSION
     Dosage: 9 NG/KG, PER MIN, IV DRIP
     Route: 041
     Dates: start: 20110228

REACTIONS (7)
  - HEADACHE [None]
  - PYREXIA [None]
  - ESCHERICHIA URINARY TRACT INFECTION [None]
  - CHILLS [None]
  - HEART RATE INCREASED [None]
  - BLOOD CULTURE POSITIVE [None]
  - BLOOD PRESSURE INCREASED [None]
